FAERS Safety Report 5480690-5 (Version None)
Quarter: 2007Q4

REPORT INFORMATION
  Report Type: 
  Country: None (occurrence: None)
  Receive Date: 20071009
  Receipt Date: 20070925
  Transmission Date: 20080405
  Serious: Yes (Hospitalization, Other)
  Sender: FDA-Public Use
  Company Number: US-RANBAXY-2007US-10291

PATIENT

DRUGS (2)
  1. MINOCYCLINE HYDROCHLORIDE [Suspect]
     Indication: ACNE
  2. TOPICAL CREAM [Concomitant]
     Indication: ACNE

REACTIONS (6)
  - HYPERSENSITIVITY [None]
  - JAUNDICE [None]
  - JOINT STIFFNESS [None]
  - PYREXIA [None]
  - RASH [None]
  - VOMITING [None]
